FAERS Safety Report 12132696 (Version 1)
Quarter: 2016Q1

REPORT INFORMATION
  Report Type: Spontaneous
  Country: IS (occurrence: IS)
  Receive Date: 20160301
  Receipt Date: 20160301
  Transmission Date: 20160526
  Serious: Yes (Disabling, Other)
  Sender: FDA-Public Use
  Company Number: IS-INDIVIOR LIMITED-INDV-088347-2016

PATIENT
  Sex: Male

DRUGS (2)
  1. SUBOXONE [Suspect]
     Active Substance: BUPRENORPHINE HYDROCHLORIDE\NALOXONE HYDROCHLORIDE
     Indication: PRODUCT USED FOR UNKNOWN INDICATION
     Dosage: UNK
     Route: 065
  2. CANNABIS [Suspect]
     Active Substance: CANNABIS SATIVA SUBSP. INDICA TOP
     Indication: PRODUCT USED FOR UNKNOWN INDICATION
     Dosage: UNK
     Route: 065

REACTIONS (15)
  - Theft [Recovered/Resolved]
  - Injury [Unknown]
  - Drug abuse [Unknown]
  - Drug withdrawal syndrome [Unknown]
  - Tremor [Unknown]
  - Feeling cold [Unknown]
  - Substance abuse [Unknown]
  - Sneezing [Unknown]
  - Drug screen positive [Unknown]
  - Disability [Unknown]
  - Crime [Recovered/Resolved]
  - Drug dependence [Unknown]
  - Abdominal pain upper [Unknown]
  - Brain injury [Unknown]
  - Suicide attempt [Recovered/Resolved]
